FAERS Safety Report 6647005-8 (Version None)
Quarter: 2010Q1

REPORT INFORMATION
  Report Type: 
  Country: None (occurrence: None)
  Receive Date: 20100323
  Receipt Date: 20100127
  Transmission Date: 20100710
  Serious: Yes (Hospitalization, Other)
  Sender: FDA-Public Use
  Company Number: A0816985A

PATIENT
  Age: 17 Year
  Sex: Female

DRUGS (2)
  1. LAMICTAL XR [Suspect]
     Dosage: 200MG PER DAY
     Route: 048
     Dates: start: 20091008, end: 20091109
  2. NO CONCURRENT MEDICATION [Concomitant]

REACTIONS (9)
  - BLINDNESS [None]
  - DYSPHAGIA [None]
  - EYE SWELLING [None]
  - HYPERSENSITIVITY [None]
  - PAIN [None]
  - PHARYNGEAL ULCERATION [None]
  - RASH VESICULAR [None]
  - SKIN INJURY [None]
  - STEVENS-JOHNSON SYNDROME [None]
